FAERS Safety Report 24950649 (Version 1)
Quarter: 2025Q1

REPORT INFORMATION
  Report Type: Spontaneous
  Country: FR (occurrence: FR)
  Receive Date: 20250210
  Receipt Date: 20250210
  Transmission Date: 20250409
  Serious: Yes (Congenital Anomaly)
  Sender: TEVA
  Company Number: None

PATIENT
  Age: 1 Day
  Sex: Female

DRUGS (3)
  1. TRAMADOL [Suspect]
     Active Substance: TRAMADOL
     Indication: Pain
     Route: 048
     Dates: start: 20241127
  2. IBUPROFEN [Suspect]
     Active Substance: IBUPROFEN
     Indication: Dysmenorrhoea
     Route: 048
  3. KETOPROFEN [Suspect]
     Active Substance: KETOPROFEN
     Indication: Pain
     Route: 048
     Dates: start: 20241127

REACTIONS (4)
  - Granuloma [Not Recovered/Not Resolved]
  - Iris adhesions [Not Recovered/Not Resolved]
  - Ductus arteriosus stenosis foetal [Not Recovered/Not Resolved]
  - Anorectal malformation [Not Recovered/Not Resolved]

NARRATIVE: CASE EVENT DATE: 20241211
